FAERS Safety Report 7351505-5 (Version None)
Quarter: 2011Q1

REPORT INFORMATION
  Report Type: 
  Country: None (occurrence: None)
  Receive Date: 20110314
  Receipt Date: 20110302
  Transmission Date: 20110831
  Serious: Yes (Death, Other)
  Sender: FDA-Public Use
  Company Number: AT-GENENTECH-314105

PATIENT
  Age: 63 Year
  Sex: Female

DRUGS (4)
  1. TRIAMCINOLONE [Concomitant]
     Indication: PRODUCT USED FOR UNKNOWN INDICATION
  2. ANTIHYPERTENSIVE [Concomitant]
     Indication: PRODUCT USED FOR UNKNOWN INDICATION
  3. METFORMIN [Concomitant]
     Indication: PRODUCT USED FOR UNKNOWN INDICATION
  4. LUCENTIS [Suspect]
     Indication: DIABETIC RETINOPATHY
     Dosage: 0.05 ML, UNK
     Route: 031
     Dates: start: 20110208

REACTIONS (4)
  - MYOCARDIAL INFARCTION [None]
  - CIRCULATORY COLLAPSE [None]
  - PULMONARY CONGESTION [None]
  - CARDIOMEGALY [None]
